FAERS Safety Report 23370563 (Version 2)
Quarter: 2024Q1

REPORT INFORMATION
  Report Type: Spontaneous
  Country: US (occurrence: US)
  Receive Date: 20240105
  Receipt Date: 20240319
  Transmission Date: 20240410
  Serious: No
  Sender: FDA-Public Use
  Company Number: US-SA-SAC20240101000129

PATIENT
  Sex: Female
  Weight: 84 kg

DRUGS (2)
  1. DUPIXENT [Suspect]
     Active Substance: DUPILUMAB
     Indication: Asthma
     Dosage: 300 MG, QOW
     Route: 058
  2. DEVICE [Concomitant]
     Active Substance: DEVICE

REACTIONS (3)
  - Contusion [Recovered/Resolved]
  - Eye pruritus [Unknown]
  - Ocular hyperaemia [Unknown]
